FAERS Safety Report 10404338 (Version 2)
Quarter: 2014Q2

REPORT INFORMATION
  Report Type: Spontaneous
  Country: US (occurrence: None)
  Receive Date: 20140228
  Receipt Date: 20140530
  Transmission Date: 20141212
  Serious: No
  Sender: FDA-Public Use
  Company Number: 225149 LEO

PATIENT
  Sex: Male

DRUGS (1)
  1. PICATO [Suspect]
     Indication: ACTINIC KERATOSIS
     Route: 061
     Dates: start: 20131226, end: 20131228

REACTIONS (7)
  - Eye swelling [None]
  - Eyelid ptosis [None]
  - Swelling [None]
  - Application site swelling [None]
  - Application site erythema [None]
  - Drug administered at inappropriate site [None]
  - Drug ineffective [None]
